FAERS Safety Report 7699003-3 (Version None)
Quarter: 2011Q3

REPORT INFORMATION
  Report Type: 
  Country: None (occurrence: None)
  Receive Date: 20110819
  Receipt Date: 20110818
  Transmission Date: 20111222
  Serious: Yes (Other)
  Sender: FDA-Public Use
  Company Number: US-PFIZER INC-2011191149

PATIENT
  Sex: Male
  Weight: 74.83 kg

DRUGS (5)
  1. CHANTIX [Suspect]
     Indication: SMOKING CESSATION THERAPY
     Dosage: 0.5 MG, 1X/DAY
     Dates: start: 20110301
  2. SUBOXONE [Concomitant]
     Dosage: UNK
  3. XANAX [Concomitant]
     Indication: ANXIETY
     Dosage: UNK
  4. CHANTIX [Suspect]
     Dosage: 1 MG, 1X/DAY
     Dates: start: 20110301
  5. CHANTIX [Suspect]
     Dosage: 1 MG, 2X/DAY
     Route: 048
     Dates: start: 20110301

REACTIONS (4)
  - ANGER [None]
  - PERSONALITY CHANGE [None]
  - DEPRESSED MOOD [None]
  - ROAD TRAFFIC ACCIDENT [None]
